FAERS Safety Report 8596738-5 (Version None)
Quarter: 2012Q3

REPORT INFORMATION
  Report Type: 
  Country: None (occurrence: None)
  Receive Date: 20120815
  Receipt Date: 20120806
  Transmission Date: 20120928
  Serious: Yes (Hospitalization)
  Sender: FDA-Public Use
  Company Number: US-ASTRAZENECA-2012SE55328

PATIENT
  Age: 46 Year
  Sex: Male

DRUGS (6)
  1. NEXIUM [Suspect]
     Route: 048
  2. THYROID MEDICATION [Concomitant]
     Indication: THYROID DISORDER
  3. LEVEMIR [Concomitant]
     Indication: DIABETES MELLITUS
     Dosage: DAILY
     Route: 058
     Dates: start: 20090101
  4. INSULIN [Concomitant]
     Indication: DIABETES MELLITUS
  5. NEXIUM [Suspect]
     Indication: GASTROOESOPHAGEAL REFLUX DISEASE
     Route: 048
     Dates: start: 20080101
  6. ZESTRIL [Concomitant]
     Indication: HYPERTENSION
     Route: 048
     Dates: start: 20020101

REACTIONS (9)
  - VOMITING [None]
  - HEADACHE [None]
  - CONSTIPATION [None]
  - GASTROENTERITIS [None]
  - FATIGUE [None]
  - DRUG INTOLERANCE [None]
  - SOMNOLENCE [None]
  - GASTROINTESTINAL DISORDER [None]
  - INTENTIONAL DRUG MISUSE [None]
